FAERS Safety Report 21996500 (Version 1)
Quarter: 2023Q1

REPORT INFORMATION
  Report Type: Spontaneous
  Country: US (occurrence: US)
  Receive Date: 20230215
  Receipt Date: 20230215
  Transmission Date: 20230417
  Serious: No
  Sender: FDA-Public Use
  Company Number: US-ALLERGAN-2207275US

PATIENT
  Sex: Female

DRUGS (1)
  1. VIIBRYD [Suspect]
     Active Substance: VILAZODONE HYDROCHLORIDE
     Indication: Product used for unknown indication
     Dosage: UNK

REACTIONS (3)
  - Anxiety [Unknown]
  - Wrong technique in product usage process [Unknown]
  - Intercepted product prescribing error [Unknown]

NARRATIVE: CASE EVENT DATE: 20220201
